FAERS Safety Report 14939561 (Version 1)
Quarter: 2018Q2

REPORT INFORMATION
  Report Type: Spontaneous
  Country: US (occurrence: US)
  Receive Date: 20180507
  Receipt Date: 20180507
  Transmission Date: 20180711
  Serious: No
  Sender: FDA-Public Use
  Company Number: None

PATIENT
  Age: 54 Year
  Sex: Female

DRUGS (1)
  1. AMPYRA [Suspect]
     Active Substance: DALFAMPRIDINE
     Indication: MYELOPATHY
     Route: 048
     Dates: start: 20180113

REACTIONS (3)
  - Haemorrhagic cyst [None]
  - Laboratory test abnormal [None]
  - Deep vein thrombosis [None]

NARRATIVE: CASE EVENT DATE: 20180420
